FAERS Safety Report 18209825 (Version 1)
Quarter: 2020Q3

REPORT INFORMATION
  Report Type: Spontaneous
  Country: DE (occurrence: DE)
  Receive Date: 20200828
  Receipt Date: 20200828
  Transmission Date: 20201103
  Serious: Yes (Other)
  Sender: FDA-Public Use
  Company Number: DE-ANIPHARMA-2020-DE-000188

PATIENT
  Age: 54 Year
  Sex: Female

DRUGS (3)
  1. ARIMIDEX [Suspect]
     Active Substance: ANASTROZOLE
     Indication: PALLIATIVE CARE
     Route: 048
     Dates: start: 20160220, end: 202004
  2. XGEVA [Concomitant]
     Active Substance: DENOSUMAB
     Dosage: (120) EVERY FOUR WEEKS
     Route: 065
     Dates: start: 201609
  3. IBRANCE [Suspect]
     Active Substance: PALBOCICLIB
     Route: 065
     Dates: start: 201701, end: 202004

REACTIONS (8)
  - Hepatic steatosis [Unknown]
  - Neoplasm progression [Unknown]
  - Fungal infection [Unknown]
  - Acute kidney injury [Unknown]
  - Cardiomyopathy [Unknown]
  - Renal cyst [Unknown]
  - Second primary malignancy [Unknown]
  - Signet-ring cell carcinoma [Unknown]

NARRATIVE: CASE EVENT DATE: 201909
